FAERS Safety Report 4580466-7 (Version None)
Quarter: 2005Q1

REPORT INFORMATION
  Report Type: 
  Country: None (occurrence: None)
  Receive Date: 20050214
  Receipt Date: 20040203
  Transmission Date: 20050727
  Serious: Yes (Other)
  Sender: FDA-Public Use
  Company Number: US-GLAXOSMITHKLINE-A0496320A

PATIENT
  Age: 25 Year
  Sex: Female
  Weight: 72.7 kg

DRUGS (4)
  1. LAMICTAL [Suspect]
     Indication: ILL-DEFINED DISORDER
     Dosage: 12.5MG PER DAY
     Route: 048
     Dates: start: 20031126, end: 20031216
  2. VALPROATE [Concomitant]
     Dosage: 500MG PER DAY
     Dates: start: 19981216
  3. LITHIUM CARBONATE [Concomitant]
     Dosage: 300MG TWICE PER DAY
  4. SEROQUEL [Concomitant]

REACTIONS (2)
  - RASH [None]
  - STEVENS-JOHNSON SYNDROME [None]
